FAERS Safety Report 4299118-6 (Version None)
Quarter: 2004Q1

REPORT INFORMATION
  Report Type: 
  Country: None (occurrence: None)
  Receive Date: 20040217
  Receipt Date: 20040206
  Transmission Date: 20041129
  Serious: No
  Sender: FDA-Public Use
  Company Number: 2004UW02167

PATIENT
  Age: 66 Year
  Sex: Male

DRUGS (12)
  1. DIPRIVAN [Suspect]
     Indication: SEDATION
     Dosage: 3 ML/HR IV
     Route: 042
     Dates: start: 20040131
  2. ASPIRIN [Concomitant]
  3. BUMEX [Concomitant]
  4. CEFTRIAXONE [Concomitant]
  5. LOVENOX [Concomitant]
  6. LEVOFLOXACIN [Concomitant]
  7. SOLU-MEDROL [Concomitant]
  8. INSULIN [Concomitant]
  9. PROTONIX [Concomitant]
  10. LOPRESSOR [Concomitant]
  11. MORPHINE [Concomitant]
  12. LORAZEPAM [Concomitant]

REACTIONS (1)
  - BLOOD SODIUM INCREASED [None]
